FAERS Safety Report 11079613 (Version 1)
Quarter: 2015Q2

REPORT INFORMATION
  Report Type: Spontaneous
  Country: US (occurrence: US)
  Receive Date: 20150430
  Receipt Date: 20150430
  Transmission Date: 20150821
  Serious: Yes (Other)
  Sender: FDA-Public Use
  Company Number: US-ASTRAZENECA-2015SE38824

PATIENT
  Sex: Female

DRUGS (3)
  1. EXCEDRIN MIGRAINE [Suspect]
     Active Substance: ACETAMINOPHEN\ASPIRIN\CAFFEINE
     Dosage: 1 CAPLET EVERY 8 HOURS
     Route: 065
  2. PRILOSEC [Suspect]
     Active Substance: OMEPRAZOLE MAGNESIUM
     Dosage: TWO TIMES A DAY
     Route: 048
  3. PROTONIX [Suspect]
     Active Substance: PANTOPRAZOLE SODIUM
     Dosage: TWO TIMES A DAY
     Route: 065

REACTIONS (17)
  - Gastrointestinal ulcer [Unknown]
  - Dysstasia [Unknown]
  - Headache [Unknown]
  - Fatigue [Unknown]
  - Abdominal pain [Unknown]
  - Medication residue present [Unknown]
  - Apparent death [Unknown]
  - Bone pain [Unknown]
  - Gastritis [Unknown]
  - Dyspepsia [Unknown]
  - Small intestinal perforation [Unknown]
  - Abdominal tenderness [Unknown]
  - Bone density abnormal [Unknown]
  - Haemorrhage [Unknown]
  - Pain [Unknown]
  - Back disorder [Unknown]
  - Abdominal distension [Unknown]
